FAERS Safety Report 8197663-4 (Version None)
Quarter: 2012Q1

REPORT INFORMATION
  Report Type: 
  Country: None (occurrence: None)
  Receive Date: 20120309
  Receipt Date: 20120302
  Transmission Date: 20120608
  Serious: Yes (Hospitalization, Other)
  Sender: FDA-Public Use
  Company Number: JP-PFIZER INC-2012035248

PATIENT
  Age: 74 Year
  Sex: Male
  Weight: 45 kg

DRUGS (8)
  1. GELATIN [Suspect]
     Indication: THERAPEUTIC EMBOLISATION
     Dosage: UNK
     Route: 013
     Dates: start: 20101116, end: 20101116
  2. BISOPROLOL FUMARATE [Concomitant]
     Indication: HYPERTENSION
     Dosage: 2.5 MG/DAY
     Route: 048
  3. FAMOSTAGINE [Concomitant]
     Indication: GASTRITIS
     Dosage: 40 MG/DAY
     Route: 048
  4. MIYA BM [Concomitant]
     Indication: DYSCHEZIA
     Dosage: 1 DF, 3X/DAY
     Route: 048
  5. LIPIODOL [Suspect]
     Indication: THERAPEUTIC EMBOLISATION
     Dosage: 2 ML/DAY
     Route: 013
     Dates: start: 20101116, end: 20101116
  6. EPIRUBICIN HYDROCHLORIDE [Suspect]
     Indication: THERAPEUTIC EMBOLISATION
     Dosage: 20 MG/DAY
     Route: 042
     Dates: start: 20101116, end: 20101116
  7. TERBINAFINE HYDROCHLORIDE [Concomitant]
     Indication: TINEA INFECTION
     Dosage: 125 MG/DAY
     Route: 048
  8. PARULEON [Concomitant]
     Indication: INSOMNIA
     Dosage: 0.5 MG/DAY
     Route: 048

REACTIONS (4)
  - LIVER ABSCESS [None]
  - RENAL IMPAIRMENT [None]
  - GASTRIC ULCER HAEMORRHAGE [None]
  - DISSEMINATED INTRAVASCULAR COAGULATION [None]
